FAERS Safety Report 7833927-9 (Version None)
Quarter: 2011Q4

REPORT INFORMATION
  Report Type: 
  Country: None (occurrence: None)
  Receive Date: 20111024
  Receipt Date: 20111019
  Transmission Date: 20120403
  Serious: Yes (Hospitalization)
  Sender: FDA-Public Use
  Company Number: BE-ROCHE-717609

PATIENT
  Sex: Male
  Weight: 73.5 kg

DRUGS (31)
  1. OMEPRAZOLE [Concomitant]
     Dates: start: 20100821, end: 20100821
  2. LITICAN [Concomitant]
     Dates: start: 20100115, end: 20100301
  3. TEMOZOLOMIDE [Suspect]
     Dosage: LAST DOSE PRIOR TO SAE ON 04 MAY 2010, FREQUENCY: 5 DAYS PER MONTH
     Route: 048
  4. LITICON [Concomitant]
     Dosage: DOSING FREQ: PRN
  5. FLOXAPEN [Concomitant]
     Route: 048
     Dates: start: 20100714, end: 20100801
  6. OMEPRAZOLE [Concomitant]
     Dates: start: 20100825, end: 20100826
  7. ROCURONIUM BROMIDE [Concomitant]
     Dates: start: 20100831, end: 20100831
  8. TRAZODONE HCL [Concomitant]
  9. OMEPRAZOLE [Concomitant]
     Dates: start: 20100112, end: 20100101
  10. PROPOFOL [Concomitant]
     Dates: start: 20100831, end: 20100831
  11. SUFENTANIL CITRATE [Concomitant]
     Dates: start: 20100831, end: 20100831
  12. LITICAN [Concomitant]
     Dates: start: 20100113, end: 20100114
  13. TEMOZOLOMIDE [Suspect]
     Indication: GLIOBLASTOMA
     Dosage: FREQUENCY: DAILY, 5 DAYS PER MONTH. LAST DOSE PRIOR TO SAE: 4 MAY 2010. DRUG: TEMODAL, DOSE: 300MG
     Route: 048
  14. DEXPANTHENOL [Concomitant]
  15. OMEPRAZOLE [Concomitant]
     Dates: start: 20100326, end: 20100301
  16. TRAZODONE HCL [Concomitant]
     Dates: start: 20091126
  17. ACETAMINOPHEN [Concomitant]
     Route: 042
     Dates: start: 20100727, end: 20100727
  18. ACETAMINOPHEN [Concomitant]
     Route: 042
     Dates: start: 20100813, end: 20100814
  19. TRAMADOL HCL [Concomitant]
     Dates: start: 20090831
  20. PANTOPRAZOLE [Concomitant]
     Dates: start: 20091101, end: 20091101
  21. LEVETIRACETAM [Concomitant]
     Dates: start: 20100910
  22. ACETAMINOPHEN [Concomitant]
  23. TROPISETRON [Concomitant]
     Dates: start: 20091001, end: 20100504
  24. POLYVIDONE [Concomitant]
     Dosage: TDD: NA
     Dates: start: 20091204, end: 20100726
  25. TRAZODONE HCL [Concomitant]
  26. OMEPRAZOLE [Concomitant]
     Dates: start: 20100829, end: 20100911
  27. OMEPRAZOLE [Concomitant]
  28. PANTOPRAZOLE [Concomitant]
     Dates: start: 20100101
  29. ALVITYL PLUS [Concomitant]
     Dates: start: 20100517, end: 20100101
  30. ESOMEPRAZOLE SODIUM [Concomitant]
     Dates: start: 20100727, end: 20100727
  31. ALPRAZOLAM [Concomitant]
     Dates: start: 20100726

REACTIONS (1)
  - SKIN INFECTION [None]
